FAERS Safety Report 16890743 (Version 1)
Quarter: 2019Q4

REPORT INFORMATION
  Report Type: Spontaneous
  Country: US (occurrence: US)
  Receive Date: 20191005
  Receipt Date: 20191005
  Transmission Date: 20200122
  Serious: Yes (Life-Threatening, Hospitalization)
  Sender: FDA-Public Use
  Company Number: None

PATIENT
  Age: 71 Year
  Sex: Female
  Weight: 84.15 kg

DRUGS (9)
  1. ZOLOFT [Concomitant]
     Active Substance: SERTRALINE HYDROCHLORIDE
  2. CURCUMIN [Concomitant]
     Active Substance: CURCUMIN
  3. ZOFRAN [Concomitant]
     Active Substance: ONDANSETRON HYDROCHLORIDE
  4. GLEEVEC [Suspect]
     Active Substance: IMATINIB MESYLATE
     Indication: CHRONIC MYELOID LEUKAEMIA
     Dosage: ?          QUANTITY:1 TABLET(S);?
     Route: 048
     Dates: start: 20061005, end: 20190302
  5. LUTEIN [Concomitant]
     Active Substance: LUTEIN
  6. FISH OIL [Concomitant]
     Active Substance: FISH OIL
  7. GLEEVEC [Concomitant]
     Active Substance: IMATINIB MESYLATE
  8. BOSULIF [Concomitant]
     Active Substance: BOSUTINIB MONOHYDRATE
  9. MVI [Concomitant]
     Active Substance: VITAMINS

REACTIONS (2)
  - Viral infection [None]
  - Chest pain [None]

NARRATIVE: CASE EVENT DATE: 20190302
